FAERS Safety Report 14275287 (Version 2)
Quarter: 2018Q1

REPORT INFORMATION
  Report Type: Spontaneous
  Country: US (occurrence: US)
  Receive Date: 20171212
  Receipt Date: 20180109
  Transmission Date: 20180508
  Serious: No
  Sender: FDA-Public Use
  Company Number: US-BIOGEN-2017BI00491340

PATIENT
  Age: 11 Year
  Sex: Female

DRUGS (1)
  1. SPINRAZA [Suspect]
     Active Substance: NUSINERSEN
     Indication: SPINAL MUSCULAR ATROPHY
     Dosage: LOADING DOSES: THREE LOADING DOSES OF 12 MILLIGRAMS, INTRATHECAL, 1 PER 14 DAYS FOLLOWED BY A FOU...
     Route: 037
     Dates: start: 20171127

REACTIONS (1)
  - Back pain [Unknown]

NARRATIVE: CASE EVENT DATE: 20171127
